FAERS Safety Report 4820169-4 (Version None)
Quarter: 2005Q4

REPORT INFORMATION
  Report Type: 
  Country: None (occurrence: None)
  Receive Date: 20051104
  Receipt Date: 20051018
  Transmission Date: 20060501
  Serious: Yes (Death)
  Sender: FDA-Public Use
  Company Number: FR-BRACCO-BRO-009137

PATIENT
  Sex: Male

DRUGS (1)
  1. IOPAMIRON [Suspect]
     Route: 042
     Dates: start: 20050703, end: 20050703

REACTIONS (1)
  - ANAPHYLACTIC SHOCK [None]
